FAERS Safety Report 5166726-X (Version None)
Quarter: 2006Q4

REPORT INFORMATION
  Report Type: 
  Country: None (occurrence: None)
  Receive Date: 20061207
  Receipt Date: 20061129
  Transmission Date: 20070319
  Serious: Yes (Other)
  Sender: FDA-Public Use
  Company Number: GB-JNJFOC-20061106589

PATIENT
  Sex: Male
  Weight: 76 kg

DRUGS (8)
  1. REMICADE [Suspect]
     Indication: RHEUMATOID ARTHRITIS
     Route: 042
  2. METHOTREXATE [Concomitant]
     Route: 065
  3. METHYLPREDNISOLONE ACETATE [Concomitant]
     Route: 065
  4. ASPIRIN [Concomitant]
     Route: 065
  5. CELEBREX [Concomitant]
     Route: 065
  6. FERROUS SULFATE TAB [Concomitant]
     Route: 065
  7. FOLIC ACID [Concomitant]
     Route: 065
  8. LANSOPRAZOLE [Concomitant]
     Route: 065

REACTIONS (1)
  - BASAL CELL CARCINOMA [None]
